FAERS Safety Report 19309442 (Version 1)
Quarter: 2021Q2

REPORT INFORMATION
  Report Type: Spontaneous
  Country: CN (occurrence: CN)
  Receive Date: 20210526
  Receipt Date: 20210526
  Transmission Date: 20210717
  Serious: Yes (Other)
  Sender: FDA-Public Use
  Company Number: CN-ASTRAZENECA-2021A412463

PATIENT
  Age: 76 Year
  Sex: Female

DRUGS (2)
  1. IRESSA [Suspect]
     Active Substance: GEFITINIB
     Indication: NON-SMALL CELL LUNG CANCER
     Route: 048
     Dates: start: 201207
  2. TIANQINGYITAI [Concomitant]
     Indication: ADENOCARCINOMA METASTATIC
     Dosage: ONCE A MONTH
     Route: 042

REACTIONS (2)
  - Malignant neoplasm progression [Unknown]
  - Rash [Unknown]
